FAERS Safety Report 20551313 (Version 1)
Quarter: 2022Q1

REPORT INFORMATION
  Report Type: Spontaneous
  Country: US (occurrence: US)
  Receive Date: 20220304
  Receipt Date: 20220304
  Transmission Date: 20220424
  Serious: Yes (Hospitalization)
  Sender: FDA-Public Use
  Company Number: US-AUROBINDO-AUR-APL-2022-006289

PATIENT
  Age: 61 Year
  Sex: Female

DRUGS (7)
  1. AMOXICILLIN\CLAVULANIC ACID [Suspect]
     Active Substance: AMOXICILLIN\CLAVULANIC ACID
     Indication: Tenosynovitis
     Dosage: UNK, TWO TIMES A DAY (875 MG-125 MG)
     Route: 048
  2. METHOTREXATE [Suspect]
     Active Substance: METHOTREXATE
     Indication: Psoriatic arthropathy
     Dosage: UNK
     Route: 065
  3. AMPICILLIN SODIUM\SULBACTAM SODIUM [Concomitant]
     Active Substance: AMPICILLIN SODIUM\SULBACTAM SODIUM
     Indication: Product used for unknown indication
     Dosage: 3 GRAM, FOUR TIMES/DAY
     Route: 065
  4. AMOXICILLIN\CLAVULANATE POTASSIUM [Concomitant]
     Active Substance: AMOXICILLIN\CLAVULANATE POTASSIUM
     Indication: Product used for unknown indication
     Dosage: UNK, TWO TIMES A DAY (875-125 MG)
     Route: 065
  5. DOXYCYCLINE [Concomitant]
     Active Substance: DOXYCYCLINE
     Indication: Product used for unknown indication
     Dosage: 100 MILLIGRAM, TWO TIMES A DAY
     Route: 065
  6. SULFAMETHOXAZOLE\TRIMETHOPRIM [Concomitant]
     Active Substance: SULFAMETHOXAZOLE\TRIMETHOPRIM
     Indication: Product used for unknown indication
     Dosage: UNK, TWO TIMES A DAY
     Route: 065
  7. VANCOMYCIN [Concomitant]
     Active Substance: VANCOMYCIN
     Indication: Product used for unknown indication
     Dosage: 2 GRAM, TWO TIMES A DAY
     Route: 042

REACTIONS (3)
  - Campylobacter infection [Recovered/Resolved]
  - Tenosynovitis [Unknown]
  - Drug ineffective [Unknown]
